FAERS Safety Report 13288901 (Version 1)
Quarter: 2017Q1

REPORT INFORMATION
  Report Type: Spontaneous
  Country: FR (occurrence: FR)
  Receive Date: 20170302
  Receipt Date: 20170302
  Transmission Date: 20170428
  Serious: Yes (Other)
  Sender: FDA-Public Use
  Company Number: FR-ABBVIE-17P-056-1895081-00

PATIENT
  Age: 9 Month

DRUGS (1)
  1. MICROPAKINE [Suspect]
     Active Substance: VALPROIC ACID
     Indication: SEIZURE
     Route: 048
     Dates: start: 201408, end: 201509

REACTIONS (9)
  - Appetite disorder [Recovered/Resolved with Sequelae]
  - Petit mal epilepsy [Recovered/Resolved with Sequelae]
  - Autism [Recovered/Resolved with Sequelae]
  - Language disorder [Recovered/Resolved with Sequelae]
  - Learning disability [Recovered/Resolved with Sequelae]
  - Somnolence [Recovered/Resolved]
  - Movement disorder [Recovered/Resolved with Sequelae]
  - Abnormal behaviour [Recovered/Resolved with Sequelae]
  - Communication disorder [Recovered/Resolved with Sequelae]

NARRATIVE: CASE EVENT DATE: 201408
